FAERS Safety Report 4816942-9 (Version None)
Quarter: 2005Q4

REPORT INFORMATION
  Report Type: 
  Country: None (occurrence: None)
  Receive Date: 20051031
  Receipt Date: 20051031
  Transmission Date: 20060501
  Serious: Yes (Hospitalization)
  Sender: FDA-Public Use
  Company Number: None

PATIENT
  Sex: Male
  Weight: 96.1626 kg

DRUGS (9)
  1. PREDNISONE [Suspect]
     Indication: IDIOPATHIC THROMBOCYTOPENIC PURPURA
     Dosage: 40 MG BID [DECREASED]
     Dates: start: 20050627, end: 20050718
  2. ALBUTEROL 90/IPRATROP IHN [Concomitant]
  3. FLUNISOLIDE INH [Concomitant]
  4. HCTZ 12.5 /LISINOPRIL [Concomitant]
  5. METOPROLOL TARTRATE [Concomitant]
  6. ADALAT CC [Concomitant]
  7. PREDNISONE [Concomitant]
  8. SODIUM CHLORIDE NASAL SPRAY [Concomitant]
  9. TRAZODONE HCL [Concomitant]

REACTIONS (1)
  - ASTHENIA [None]
